FAERS Safety Report 16586241 (Version 1)
Quarter: 2019Q3

REPORT INFORMATION
  Report Type: Spontaneous
  Country: ES (occurrence: ES)
  Receive Date: 20190717
  Receipt Date: 20190717
  Transmission Date: 20191004
  Serious: Yes (Other)
  Sender: FDA-Public Use
  Company Number: PHHY2019ES164282

PATIENT
  Sex: Female

DRUGS (8)
  1. TAPENTADOL [Suspect]
     Active Substance: TAPENTADOL
     Indication: BREAKTHROUGH PAIN
     Dosage: 150 MG, Q12H
     Route: 065
  2. PECFENT [Suspect]
     Active Substance: FENTANYL CITRATE
     Dosage: 800 UG, QD
     Route: 045
  3. DEXAMETHASONE. [Suspect]
     Active Substance: DEXAMETHASONE
     Indication: PAIN
     Dosage: UNK
     Route: 065
  4. TAPENTADOL [Suspect]
     Active Substance: TAPENTADOL
     Dosage: 50 MG, Q12H
     Route: 065
  5. PREGABALIN. [Suspect]
     Active Substance: PREGABALIN
     Indication: PAIN
     Dosage: UNK
     Route: 065
  6. MORPHINE [Suspect]
     Active Substance: MORPHINE
     Indication: PAIN
     Dosage: 100 MG, QD
     Route: 065
  7. PECFENT [Suspect]
     Active Substance: FENTANYL CITRATE
     Indication: BREAKTHROUGH PAIN
     Dosage: 100 UG,  (1-2 RESCUES/DAY)
     Route: 045
  8. KETAMINE [Concomitant]
     Active Substance: KETAMINE
     Indication: PRODUCT USED FOR UNKNOWN INDICATION
     Dosage: 30 MG, QD
     Route: 065

REACTIONS (2)
  - Mucosal inflammation [Unknown]
  - Constipation [Unknown]

NARRATIVE: CASE EVENT DATE: 2017
